FAERS Safety Report 18506163 (Version 1)
Quarter: 2020Q4

REPORT INFORMATION
  Report Type: Spontaneous
  Country: FR (occurrence: FR)
  Receive Date: 20201116
  Receipt Date: 20201116
  Transmission Date: 20210114
  Serious: Yes (Other)
  Sender: FDA-Public Use
  Company Number: FR-PIERREL PHARMA S.P.A.-2020PIR00033

PATIENT
  Age: 35 Year
  Sex: Male

DRUGS (2)
  1. UNSPECIFIED SSRI TREATMENT [Concomitant]
     Route: 065
  2. ARTICAINE/EPINEPHRINE [Suspect]
     Active Substance: ARTICAINE\EPINEPHRINE
     Indication: LOCAL ANAESTHESIA
     Route: 065

REACTIONS (2)
  - Skin lesion [Recovered/Resolved]
  - Haematoma [Not Recovered/Not Resolved]
